FAERS Safety Report 8987913 (Version 1)
Quarter: 2012Q4

REPORT INFORMATION
  Report Type: 
  Country: RO (occurrence: RO)
  Receive Date: 20121227
  Receipt Date: 20121227
  Transmission Date: 20130627
  Serious: Yes (Other)
  Sender: FDA-Public Use
  Company Number: RO-GLAXOSMITHKLINE-B0855023A

PATIENT
  Age: 31 Year
  Sex: Female

DRUGS (4)
  1. TYVERB [Suspect]
     Indication: BREAST CANCER STAGE III
     Dosage: 1250MG per day
     Route: 048
     Dates: start: 20121113, end: 20121204
  2. HERCEPTIN [Concomitant]
  3. DOXORUBICINE [Concomitant]
  4. PACLITAXEL [Concomitant]

REACTIONS (1)
  - Tooth abscess [Recovering/Resolving]
